FAERS Safety Report 8906771 (Version 1)
Quarter: 2012Q4

REPORT INFORMATION
  Report Type: 
  Country: US (occurrence: US)
  Receive Date: 20121114
  Receipt Date: 20121114
  Transmission Date: 20130627
  Serious: Yes (Death, Other)
  Sender: FDA-Public Use
  Company Number: US-ACTELION-A-CH2012-74330

PATIENT
  Age: 53 Year
  Sex: Male

DRUGS (1)
  1. VELETRI [Suspect]
     Indication: PORTOPULMONARY HYPERTENSION
     Dosage: 16 ng/kg, UNK
     Route: 041

REACTIONS (9)
  - Shock haemorrhagic [Fatal]
  - Pancytopenia [Unknown]
  - Liver transplant [Unknown]
  - Splenomegaly [Unknown]
  - Biopsy bone marrow [Unknown]
  - Ascites [Unknown]
  - Haemoglobin decreased [Unknown]
  - Platelet count decreased [Unknown]
  - White blood cell count decreased [Unknown]
